FAERS Safety Report 9272697 (Version 1)
Quarter: 2013Q2

REPORT INFORMATION
  Report Type: Spontaneous
  Country: US (occurrence: US)
  Receive Date: 20130506
  Receipt Date: 20130506
  Transmission Date: 20140414
  Serious: No
  Sender: FDA-Public Use
  Company Number: US-ASTRAZENECA-2012SE30965

PATIENT
  Sex: Male

DRUGS (3)
  1. PRILOSEC OTC [Suspect]
     Route: 048
  2. ZANTAC [Suspect]
  3. PEPCID [Suspect]

REACTIONS (3)
  - Dysgeusia [Unknown]
  - Nausea [Unknown]
  - Constipation [Unknown]
